APPROVED DRUG PRODUCT: OMEPRAZOLE
Active Ingredient: OMEPRAZOLE
Strength: 10MG
Dosage Form/Route: CAPSULE, DELAYED REL PELLETS;ORAL
Application: A212977 | Product #001 | TE Code: AB
Applicant: XIROMED PHARMA ESPANA SL
Approved: Dec 10, 2020 | RLD: No | RS: No | Type: RX